FAERS Safety Report 25081788 (Version 1)
Quarter: 2025Q1

REPORT INFORMATION
  Report Type: Report from Study
  Country: CA (occurrence: CA)
  Receive Date: 20250317
  Receipt Date: 20250317
  Transmission Date: 20250409
  Serious: Yes (Other)
  Sender: AMGEN
  Company Number: CA-BEH-2025198669

PATIENT

DRUGS (1)
  1. AVACOPAN [Suspect]
     Active Substance: AVACOPAN
     Indication: Product used for unknown indication
     Route: 065

REACTIONS (3)
  - Uveitis [Unknown]
  - Glaucoma [Unknown]
  - Intraocular pressure increased [Unknown]
